FAERS Safety Report 7648639-4 (Version None)
Quarter: 2011Q3

REPORT INFORMATION
  Report Type: 
  Country: None (occurrence: None)
  Receive Date: 20110801
  Receipt Date: 20110720
  Transmission Date: 20111222
  Serious: Yes (Hospitalization)
  Sender: FDA-Public Use
  Company Number: PHHY2011JP65819

PATIENT
  Age: 56 Year
  Sex: Male

DRUGS (2)
  1. HIRNAMIN [Suspect]
  2. CARBAMAZEPINE [Suspect]
     Indication: SCHIZOPHRENIA
     Dosage: UNK

REACTIONS (1)
  - LUNG DISORDER [None]
